FAERS Safety Report 6793886-7 (Version None)
Quarter: 2010Q2

REPORT INFORMATION
  Report Type: 
  Country: None (occurrence: None)
  Receive Date: 20100624
  Receipt Date: 20090622
  Transmission Date: 20101027
  Serious: Yes (Other)
  Sender: FDA-Public Use
  Company Number: US-PFIZER INC-2009167315

PATIENT
  Age: 66 Year
  Sex: Female

DRUGS (10)
  1. GEODON [Suspect]
     Dates: start: 20090109, end: 20090115
  2. LITHIUM CARBONATE [Concomitant]
     Dosage: UNK
  3. AMLODIPINE [Concomitant]
     Dosage: UNK
  4. ATENOLOL [Concomitant]
     Dosage: UNK
  5. LEVOTHYROXINE SODIUM [Concomitant]
     Dosage: UNK
  6. TELMISARTAN [Concomitant]
     Dosage: UNK
  7. METFORMIN HYDROCHLORIDE [Concomitant]
     Dosage: UNK
  8. ALLEGRA [Concomitant]
     Dosage: UNK
  9. MONTELUKAST SODIUM [Concomitant]
  10. FERROUS SULFATE TAB [Concomitant]
     Dosage: UNK

REACTIONS (1)
  - SYNCOPE [None]
